FAERS Safety Report 15043243 (Version 2)
Quarter: 2018Q2

REPORT INFORMATION
  Report Type: Report from Study
  Country: None (occurrence: GB)
  Receive Date: 20180621
  Receipt Date: 20180625
  Transmission Date: 20180711
  Serious: Yes (Hospitalization)
  Sender: FDA-Public Use
  Company Number: GB-ABBVIE-18K-167-2393181-00

PATIENT
  Age: 79 Year
  Sex: Male

DRUGS (2)
  1. LEFLUNOMIDE. [Concomitant]
     Active Substance: LEFLUNOMIDE
     Indication: RHEUMATOID ARTHRITIS
  2. HUMIRA [Suspect]
     Active Substance: ADALIMUMAB
     Indication: RHEUMATOID ARTHRITIS
     Route: 058
     Dates: start: 20130513

REACTIONS (3)
  - Acute kidney injury [Unknown]
  - Diabetic ketoacidosis [Recovered/Resolved]
  - Infective exacerbation of chronic obstructive airways disease [Unknown]

NARRATIVE: CASE EVENT DATE: 2016
